FAERS Safety Report 13652574 (Version 1)
Quarter: 2017Q2

REPORT INFORMATION
  Report Type: Spontaneous
  Country: US (occurrence: US)
  Receive Date: 20170614
  Receipt Date: 20170614
  Transmission Date: 20170830
  Serious: Yes (Other)
  Sender: FDA-Public Use
  Company Number: US-ROCHE-720833

PATIENT
  Age: 54 Year
  Sex: Female
  Weight: 97.1 kg

DRUGS (8)
  1. LAPATINIB [Suspect]
     Active Substance: LAPATINIB
     Indication: BREAST CANCER METASTATIC
     Route: 048
  2. LETROZOLE. [Concomitant]
     Active Substance: LETROZOLE
     Route: 065
  3. LAPATINIB [Suspect]
     Active Substance: LAPATINIB
     Dosage: THERAPY INTERRUPTED
     Route: 048
  4. CAPECITABINE. [Suspect]
     Active Substance: CAPECITABINE
     Indication: BREAST CANCER METASTATIC
     Dosage: THERAPY INTERRUPTED
     Route: 065
  5. LAPATINIB [Suspect]
     Active Substance: LAPATINIB
     Dosage: THERAPY RESTARTED
     Route: 048
  6. TRASTUZUMAB [Concomitant]
     Active Substance: TRASTUZUMAB
     Route: 065
  7. VALSARTAN. [Concomitant]
     Active Substance: VALSARTAN
     Route: 065
  8. FLUOXETINE HYDROCHLORIDE. [Concomitant]
     Active Substance: FLUOXETINE HYDROCHLORIDE
     Route: 065

REACTIONS (14)
  - Stomatitis [Recovering/Resolving]
  - Pharyngeal erythema [Recovering/Resolving]
  - Abdominal pain [Recovering/Resolving]
  - Palmar-plantar erythrodysaesthesia syndrome [Recovering/Resolving]
  - Erythema [Recovering/Resolving]
  - Glossodynia [Recovering/Resolving]
  - Lip ulceration [Recovering/Resolving]
  - Diarrhoea [Recovering/Resolving]
  - Blister [Recovering/Resolving]
  - Skin exfoliation [Recovering/Resolving]
  - Skin fissures [Recovering/Resolving]
  - Pain in extremity [Recovering/Resolving]
  - Swollen tongue [Recovering/Resolving]
  - Mouth ulceration [Recovering/Resolving]

NARRATIVE: CASE EVENT DATE: 20100129
